FAERS Safety Report 12984769 (Version 1)
Quarter: 2016Q4

REPORT INFORMATION
  Report Type: Spontaneous
  Country: US (occurrence: US)
  Receive Date: 20161129
  Receipt Date: 20161129
  Transmission Date: 20170207
  Serious: Yes (Other)
  Sender: FDA-Public Use
  Company Number: US-ZYDUS-012781

PATIENT
  Age: 37 Year
  Sex: Male

DRUGS (1)
  1. DEXTROAMPHETAMINE. [Suspect]
     Active Substance: DEXTROAMPHETAMINE
     Indication: ATTENTION DEFICIT/HYPERACTIVITY DISORDER
     Route: 065

REACTIONS (4)
  - Vomiting [Unknown]
  - Headache [Unknown]
  - Blindness unilateral [Unknown]
  - Ischaemic stroke [Unknown]
